FAERS Safety Report 21699794 (Version 4)
Quarter: 2022Q4

REPORT INFORMATION
  Report Type: Report from Study
  Country: TW (occurrence: None)
  Receive Date: 20221208
  Receipt Date: 20221229
  Transmission Date: 20230113
  Serious: Yes (Hospitalization)
  Sender: FDA-Public Use
  Company Number: TW-Eisai Inc (Eisai China)-EC-2022-129413

PATIENT
  Age: 53 Year
  Sex: Female
  Weight: 47.1 kg

DRUGS (21)
  1. LENVATINIB [Suspect]
     Active Substance: LENVATINIB
     Indication: Adenocarcinoma gastric
     Route: 048
     Dates: start: 20220727, end: 20221129
  2. LENVATINIB [Suspect]
     Active Substance: LENVATINIB
     Indication: Oesophageal adenocarcinoma
  3. PEMBROLIZUMAB [Suspect]
     Active Substance: PEMBROLIZUMAB
     Indication: Adenocarcinoma gastric
     Route: 041
     Dates: start: 20220727, end: 20221019
  4. PEMBROLIZUMAB [Suspect]
     Active Substance: PEMBROLIZUMAB
     Indication: Oesophageal adenocarcinoma
  5. BISOPROLOL [Concomitant]
     Active Substance: BISOPROLOL
     Dates: start: 199912
  6. LANSOPRAZOLE [Concomitant]
     Active Substance: LANSOPRAZOLE
     Dates: start: 20220414
  7. ZINC GLUCONATE [Concomitant]
     Active Substance: ZINC GLUCONATE
     Dates: start: 20220708
  8. AMLODIPINE [Concomitant]
     Active Substance: AMLODIPINE BESYLATE
     Dates: start: 199912
  9. ASCORBIC ACID;FERROUS GLUCONATE;THIAMINE [Concomitant]
     Dates: start: 20220817
  10. MEGESTROL ACETATE [Concomitant]
     Active Substance: MEGESTROL ACETATE
     Dates: start: 20220928
  11. LEVOCETIRIZINE [Concomitant]
     Active Substance: LEVOCETIRIZINE
     Dates: start: 20220928
  12. UREA [Concomitant]
     Active Substance: UREA
     Dates: start: 20220928
  13. LEVOTHYROXINE SODIUM [Concomitant]
     Active Substance: LEVOTHYROXINE SODIUM
     Dates: start: 20220915
  14. SODIUM ALGINATE [Concomitant]
     Active Substance: SODIUM ALGINATE
     Dates: start: 20220921
  15. OXETHAZAINE [Concomitant]
     Active Substance: OXETHAZAINE
     Dates: start: 20220928
  16. HIGH XYLMOL [Concomitant]
     Dates: start: 20221019
  17. UTRAPHEN [Concomitant]
     Dates: start: 20221019
  18. BETAMETHASONE\GENTAMICIN [Concomitant]
     Active Substance: BETAMETHASONE\GENTAMICIN
     Dates: start: 20221019
  19. ALPRAZOLAM [Concomitant]
     Active Substance: ALPRAZOLAM
     Dates: start: 20221019
  20. TRANEXAMIC ACID [Concomitant]
     Active Substance: TRANEXAMIC ACID
     Dates: start: 20221108
  21. UREA CREAM WITH LACTIC ACID [Concomitant]
     Dates: start: 20220928

REACTIONS (2)
  - Asthenia [Not Recovered/Not Resolved]
  - Tumour haemorrhage [Not Recovered/Not Resolved]

NARRATIVE: CASE EVENT DATE: 20221201
